FAERS Safety Report 4759891-7 (Version None)
Quarter: 2005Q3

REPORT INFORMATION
  Report Type: 
  Country: None (occurrence: None)
  Receive Date: 20050830
  Receipt Date: 20050830
  Transmission Date: 20060218
  Serious: No
  Sender: FDA-Public Use
  Company Number: None

PATIENT

DRUGS (1)
  1. WARFARIN 5 MG TARO PHARMACEUTICALS 51672-4032-01 [Suspect]

REACTIONS (1)
  - MEDICATION ERROR [None]
